FAERS Safety Report 13742667 (Version 1)
Quarter: 2017Q3

REPORT INFORMATION
  Report Type: Report from Study
  Country: US (occurrence: US)
  Receive Date: 20170711
  Receipt Date: 20170711
  Transmission Date: 20171127
  Serious: Yes (Death)
  Sender: FDA-Public Use
  Company Number: US-UCBSA-2017026969

PATIENT
  Age: 74 Year
  Sex: Female

DRUGS (1)
  1. LACOSAMIDE. [Suspect]
     Active Substance: LACOSAMIDE
     Indication: EPILEPSY
     Dosage: UNK
     Dates: end: 20170517

REACTIONS (1)
  - Death [Fatal]

NARRATIVE: CASE EVENT DATE: 20170517
